FAERS Safety Report 8903386 (Version 1)
Quarter: 2012Q4

REPORT INFORMATION
  Report Type: 
  Country: DE (occurrence: GB)
  Receive Date: 20121111
  Receipt Date: 20121111
  Transmission Date: 20130627
  Serious: Yes (Death)
  Sender: FDA-Public Use
  Company Number: GB-BRISTOL-MYERS SQUIBB COMPANY-17103193

PATIENT
  Age: 61 Year
  Sex: Male
  Weight: 103 kg

DRUGS (8)
  1. ERBITUX SOLN FOR INF [Suspect]
     Indication: COLORECTAL CANCER METASTATIC
     Route: 042
     Dates: start: 20120904, end: 20120924
  2. ATENOLOL [Concomitant]
  3. CODEINE PHOSPHATE [Concomitant]
  4. MORPHINE SULPHATE [Concomitant]
  5. OXYTETRACYCLINE [Concomitant]
  6. PARACETAMOL [Concomitant]
  7. RAMIPRIL [Concomitant]
  8. SIMVASTATIN [Concomitant]

REACTIONS (4)
  - Interstitial lung disease [Fatal]
  - Hypoxia [Fatal]
  - Lung consolidation [Fatal]
  - Dyspnoea [Fatal]
